FAERS Safety Report 20461384 (Version 2)
Quarter: 2022Q1

REPORT INFORMATION
  Report Type: Spontaneous
  Country: GB (occurrence: GB)
  Receive Date: 20220211
  Receipt Date: 20220314
  Transmission Date: 20220423
  Serious: Yes (Hospitalization)
  Sender: FDA-Public Use
  Company Number: GB-TASMAN PHARMA, INC.-2022TSM00019

PATIENT
  Age: 37 Year
  Sex: Male

DRUGS (9)
  1. CLOZAPINE [Suspect]
     Active Substance: CLOZAPINE
     Indication: Schizophrenia
     Dosage: UNK
     Route: 065
     Dates: start: 2009
  2. CLOZAPINE [Suspect]
     Active Substance: CLOZAPINE
     Dosage: TIME OF TRANSFER; 200 MG AT 0800 AND 700 MG AT 2000
     Route: 065
  3. EPINEPHRINE [Suspect]
     Active Substance: EPINEPHRINE
     Indication: Blood pressure measurement
     Dosage: 500 ?G; DIVIDED BOLUSES
     Route: 042
  4. EPINEPHRINE [Suspect]
     Active Substance: EPINEPHRINE
     Dosage: 0.19 ?G/KG/MIN
     Route: 042
  5. EPINEPHRINE [Suspect]
     Active Substance: EPINEPHRINE
     Dosage: 0.06 ?G/KG/MIN
     Route: 042
  6. AMISULPRIDE [Concomitant]
     Active Substance: AMISULPRIDE
     Route: 065
  7. LITHIUM [Concomitant]
     Active Substance: LITHIUM
     Route: 065
  8. POLYETHYLENE GLYCOLS [Concomitant]
     Active Substance: POLYETHYLENE GLYCOLS
     Route: 065
  9. SENNA [Concomitant]
     Active Substance: SENNA LEAF\SENNOSIDES\SENNOSIDES A AND B
     Route: 065

REACTIONS (3)
  - Intestinal pseudo-obstruction [Recovered/Resolved]
  - Drug interaction [Recovered/Resolved]
  - Vasoplegia syndrome [Recovered/Resolved]
